FAERS Safety Report 16535140 (Version 3)
Quarter: 2019Q3

REPORT INFORMATION
  Report Type: Spontaneous
  Country: US (occurrence: US)
  Receive Date: 20190705
  Receipt Date: 20190809
  Transmission Date: 20191004
  Serious: Yes (Hospitalization, Other)
  Sender: FDA-Public Use
  Company Number: US-HORIZON-ACT-0194-2019

PATIENT
  Age: 2 Year
  Sex: Male

DRUGS (7)
  1. LINEZOLID. [Concomitant]
     Active Substance: LINEZOLID
  2. VITAMIN D [Concomitant]
     Active Substance: VITAMIN D NOS
  3. PREDNISONE. [Concomitant]
     Active Substance: PREDNISONE
  4. ZANTAC [Concomitant]
     Active Substance: RANITIDINE HYDROCHLORIDE
  5. ITRACONAZOLE. [Concomitant]
     Active Substance: ITRACONAZOLE
  6. BACTRIM [Concomitant]
     Active Substance: SULFAMETHOXAZOLE\TRIMETHOPRIM
  7. ACTIMMUNE [Suspect]
     Active Substance: INTERFERON GAMMA-1B
     Indication: CHRONIC GRANULOMATOUS DISEASE
     Dosage: 0.125 ML 3X WEEK SUB Q
     Route: 058
     Dates: start: 20190628

REACTIONS (5)
  - Epiglottitis [Recovering/Resolving]
  - Abscess neck [Unknown]
  - Nocardiosis [Recovering/Resolving]
  - Condition aggravated [Unknown]
  - Lymphadenitis [Recovering/Resolving]

NARRATIVE: CASE EVENT DATE: 20190701
